FAERS Safety Report 4726958-9 (Version None)
Quarter: 2005Q3

REPORT INFORMATION
  Report Type: 
  Country: None (occurrence: None)
  Receive Date: 20050728
  Receipt Date: 20050718
  Transmission Date: 20060218
  Serious: Yes (Hospitalization)
  Sender: FDA-Public Use
  Company Number: US-JNJFOC-20050703150

PATIENT
  Sex: Male
  Weight: 81.65 kg

DRUGS (5)
  1. OXYBUTININ [Suspect]
     Route: 048
  2. OXYBUTININ [Suspect]
     Route: 048
  3. OXYBUTININ [Suspect]
     Route: 048
  4. CASODEX [Concomitant]
     Indication: BLADDER CANCER
  5. FLOMAX [Concomitant]
     Indication: BENIGN PROSTATIC HYPERPLASIA

REACTIONS (3)
  - DEHYDRATION [None]
  - DRY MOUTH [None]
  - TONGUE BLACK HAIRY [None]
